FAERS Safety Report 9004460 (Version 1)
Quarter: 2013Q1

REPORT INFORMATION
  Report Type: Spontaneous
  Country: US (occurrence: None)
  Receive Date: 20130103
  Receipt Date: 20130103
  Transmission Date: 20140127
  Serious: Yes (Death, Life-Threatening, Hospitalization, Other)
  Sender: FDA-Public Use
  Company Number: None

PATIENT
  Age: 88 Year
  Sex: Female
  Weight: 68.04 kg

DRUGS (1)
  1. ACTONEL [Suspect]

REACTIONS (2)
  - Abdominal pain lower [None]
  - Small intestinal obstruction [None]
